FAERS Safety Report 11414780 (Version 3)
Quarter: 2015Q4

REPORT INFORMATION
  Report Type: Report from Study
  Country: US (occurrence: US)
  Receive Date: 20150825
  Receipt Date: 20151016
  Transmission Date: 20160304
  Serious: Yes (Other)
  Sender: FDA-Public Use
  Company Number: US-ABBVIE-15K-163-1447903-00

PATIENT
  Age: 43 Year
  Sex: Female
  Weight: 79.9 kg

DRUGS (2)
  1. HUMIRA [Suspect]
     Active Substance: ADALIMUMAB
     Indication: CROHN^S DISEASE
     Route: 058
     Dates: start: 20140725, end: 20150717
  2. ENTOCORT [Concomitant]
     Active Substance: BUDESONIDE
     Indication: CROHN^S DISEASE
     Dosage: TAPER DOSE TO SIX MG
     Route: 048
     Dates: start: 20130131, end: 20141204

REACTIONS (6)
  - Perirectal abscess [Recovered/Resolved]
  - Intestinal mucosal hypertrophy [Unknown]
  - Weight decreased [Recovering/Resolving]
  - Anal fistula [Recovered/Resolved]
  - Anal abscess [Unknown]
  - Drug ineffective [Recovering/Resolving]

NARRATIVE: CASE EVENT DATE: 20140805
